FAERS Safety Report 8477280-9 (Version None)
Quarter: 2012Q2

REPORT INFORMATION
  Report Type: 
  Country: None (occurrence: None)
  Receive Date: 20120629
  Receipt Date: 20120619
  Transmission Date: 20120825
  Serious: Yes (Other)
  Sender: FDA-Public Use
  Company Number: CA-JNJFOC-20120609827

PATIENT
  Sex: Female
  Weight: 57 kg

DRUGS (3)
  1. REMICADE [Suspect]
     Indication: CROHN'S DISEASE
     Dosage: IN INDUCTION DOSES 0-2
     Route: 042
     Dates: start: 20120502
  2. ACETAMINOPHEN [Concomitant]
     Indication: PREMEDICATION
     Route: 048
  3. REMICADE [Suspect]
     Dosage: WEEK 6
     Route: 042
     Dates: start: 20120619

REACTIONS (5)
  - HEART RATE INCREASED [None]
  - DYSPNOEA [None]
  - INFUSION RELATED REACTION [None]
  - FLUSHING [None]
  - TREMOR [None]
